FAERS Safety Report 7960867-7 (Version None)
Quarter: 2011Q4

REPORT INFORMATION
  Report Type: 
  Country: None (occurrence: None)
  Receive Date: 20111115
  Receipt Date: 20110824
  Transmission Date: 20120403
  Serious: Yes (Hospitalization)
  Sender: FDA-Public Use
  Company Number: 122011

PATIENT
  Sex: Male
  Weight: 71.6683 kg

DRUGS (1)
  1. CARBOPLATIN [Suspect]
     Indication: SQUAMOUS CELL CARCINOMA
     Dosage: AUC 1.5
     Dates: start: 20110429

REACTIONS (3)
  - ASPIRATION [None]
  - CHEST PAIN [None]
  - DYSPNOEA [None]
